FAERS Safety Report 17584734 (Version 1)
Quarter: 2020Q1

REPORT INFORMATION
  Report Type: Spontaneous
  Country: US (occurrence: US)
  Receive Date: 20200325
  Receipt Date: 20200325
  Transmission Date: 20200409
  Serious: No
  Sender: FDA-Public Use
  Company Number: None

PATIENT
  Age: 68 Year
  Sex: Male
  Weight: 109.3 kg

DRUGS (11)
  1. PROCHLORPERAZINE 10 MG ORALLY [Concomitant]
  2. MAGNESIUM OXIDE 400 MG [Concomitant]
     Active Substance: MAGNESIUM OXIDE
  3. MIRALAX ORALLY [Concomitant]
  4. LOMOTIL 2.5 - 0.025 MG ORALLY [Concomitant]
  5. ONDANSETRON 8 MG ORALLY [Concomitant]
  6. ACETAMINOPHEN 500MG ORALY [Concomitant]
  7. NORCO 7.5 325 MG ORALLY [Concomitant]
  8. LIBRAX 5 - 2.5 MG ORALLY [Concomitant]
  9. CAPECITABINE. [Suspect]
     Active Substance: CAPECITABINE
     Indication: CARCINOID TUMOUR
     Route: 048
     Dates: start: 20200204
  10. TEMOZOLOMIDE. [Suspect]
     Active Substance: TEMOZOLOMIDE
     Indication: CARCINOID TUMOUR
     Route: 048
     Dates: start: 20200311
  11. RESTORIL 30 MG ORALLY [Concomitant]

REACTIONS (2)
  - Disease progression [None]
  - Blood count abnormal [None]

NARRATIVE: CASE EVENT DATE: 20200325
